FAERS Safety Report 5825187-5 (Version None)
Quarter: 2008Q3

REPORT INFORMATION
  Report Type: 
  Country: None (occurrence: None)
  Receive Date: 20080729
  Receipt Date: 20080717
  Transmission Date: 20090109
  Serious: Yes (Hospitalization)
  Sender: FDA-Public Use
  Company Number: PHBS2008CH04998

PATIENT
  Age: 55 Year
  Sex: Female

DRUGS (1)
  1. LAMISIL [Suspect]
     Dosage: 250 MG, QD
     Route: 048
     Dates: start: 20061025, end: 20061201

REACTIONS (12)
  - ANOREXIA [None]
  - CHOLANGITIS [None]
  - CHOLESTASIS [None]
  - FATIGUE [None]
  - HEPATIC STEATOSIS [None]
  - HEPATITIS CHOLESTATIC [None]
  - HEPATOMEGALY [None]
  - JAUNDICE [None]
  - MALABSORPTION [None]
  - NAUSEA [None]
  - PRURITUS GENERALISED [None]
  - SCRATCH [None]
